FAERS Safety Report 7632803 (Version 5)
Quarter: 2013Q2

REPORT INFORMATION
  Report Type: Spontaneous
  Country: US (occurrence: US)
  Receive Date: 20101018
  Receipt Date: 20130418
  Transmission Date: 20140414
  Serious: Yes (Hospitalization, Other)
  Sender: FDA-Public Use
  Company Number: US-ROCHE-722225

PATIENT
  Age: 18 Year
  Sex: Male
  Weight: 77.1 kg

DRUGS (1)
  1. ACCUTANE [Suspect]
     Indication: ACNE
     Dosage: DOSE: 40 MG ALTERNATING WITH 80 MG DAILY
     Route: 065
     Dates: start: 199903, end: 19990703

REACTIONS (6)
  - Crohn^s disease [Unknown]
  - Small intestinal obstruction [Unknown]
  - Ileus [Unknown]
  - Inflammatory bowel disease [Unknown]
  - Emotional distress [Not Recovered/Not Resolved]
  - Osteopenia [Unknown]
